FAERS Safety Report 5083300-4 (Version None)
Quarter: 2006Q3

REPORT INFORMATION
  Report Type: 
  Country: None (occurrence: None)
  Receive Date: 20060818
  Receipt Date: 20060804
  Transmission Date: 20061208
  Serious: Yes (Hospitalization, Other)
  Sender: FDA-Public Use
  Company Number: US-AMGEN-US189049

PATIENT
  Sex: Female
  Weight: 97.2 kg

DRUGS (12)
  1. ENBREL [Suspect]
     Indication: RHEUMATOID ARTHRITIS
     Dates: start: 20040301, end: 20060522
  2. LIPITOR [Concomitant]
     Dates: start: 20030501
  3. BENADRYL [Concomitant]
  4. PAXIL [Concomitant]
     Dates: start: 20040101, end: 20040101
  5. LO/OVRAL [Concomitant]
     Dates: start: 20040701
  6. SINGULAIR [Concomitant]
     Dates: start: 20040701, end: 20050301
  7. ZYRTEC [Concomitant]
     Dates: start: 20040701, end: 20050301
  8. CYMBALTA [Concomitant]
     Dates: start: 20050301
  9. GABAPENTIN [Concomitant]
     Dates: start: 20050301, end: 20050701
  10. ADVAIR DISKUS 100/50 [Concomitant]
     Dates: start: 20050701
  11. MAXAIR [Concomitant]
  12. PAMELOR [Concomitant]
     Dates: start: 20050701

REACTIONS (3)
  - ABDOMINAL ABSCESS [None]
  - DIVERTICULUM INTESTINAL [None]
  - RENAL MASS [None]
